FAERS Safety Report 24570899 (Version 1)
Quarter: 2024Q4

REPORT INFORMATION
  Report Type: Spontaneous
  Country: US (occurrence: US)
  Receive Date: 20241101
  Receipt Date: 20241101
  Transmission Date: 20250115
  Serious: Yes (Hospitalization, Other)
  Sender: BRISTOL-MYERS SQUIBB COMPANY
  Company Number: US-BRISTOL-MYERS SQUIBB COMPANY-2024-170036

PATIENT
  Sex: Male

DRUGS (5)
  1. ELIQUIS [Suspect]
     Active Substance: APIXABAN
     Indication: Atrial fibrillation
     Dates: start: 2024, end: 2024
  2. ELIQUIS [Suspect]
     Active Substance: APIXABAN
     Dates: start: 20241028
  3. PLAVIX [Suspect]
     Active Substance: CLOPIDOGREL BISULFATE
     Indication: Product used for unknown indication
  4. ASPIRIN [Suspect]
     Active Substance: ASPIRIN
     Indication: Product used for unknown indication
  5. HEPARIN [Suspect]
     Active Substance: HEPARIN SODIUM
     Indication: Product used for unknown indication

REACTIONS (6)
  - Fluid retention [Unknown]
  - Constipation [Unknown]
  - Haematochezia [Recovering/Resolving]
  - Haemoglobin abnormal [Unknown]
  - Dizziness [Unknown]
  - Cardiac disorder [Unknown]
